FAERS Safety Report 6865314-4 (Version None)
Quarter: 2010Q3

REPORT INFORMATION
  Report Type: 
  Country: None (occurrence: None)
  Receive Date: 20100721
  Receipt Date: 20080418
  Transmission Date: 20110219
  Serious: No
  Sender: FDA-Public Use
  Company Number: US-PFIZER INC-2008035860

PATIENT
  Sex: Female
  Weight: 44.545 kg

DRUGS (3)
  1. CHANTIX [Suspect]
     Indication: SMOKING CESSATION THERAPY
     Dates: start: 20080412
  2. LIPITOR [Concomitant]
  3. CALCIUM [Concomitant]

REACTIONS (2)
  - CONSTIPATION [None]
  - DIZZINESS [None]
